FAERS Safety Report 17405404 (Version 3)
Quarter: 2022Q3

REPORT INFORMATION
  Report Type: Spontaneous
  Country: TR (occurrence: TR)
  Receive Date: 20200212
  Receipt Date: 20220913
  Transmission Date: 20221026
  Serious: Yes (Hospitalization, Other)
  Sender: FDA-Public Use
  Company Number: TR-TEVA-2020-TR-1183063

PATIENT
  Age: 14 Year
  Sex: Female

DRUGS (3)
  1. METHYLPHENIDATE [Interacting]
     Active Substance: METHYLPHENIDATE
     Indication: Attention deficit hyperactivity disorder
     Dosage: 27 MILLIGRAM DAILY;
     Route: 065
  2. METHYLPHENIDATE [Interacting]
     Active Substance: METHYLPHENIDATE
     Dosage: 36 MILLIGRAM DAILY;
     Route: 065
  3. INDOMETHACIN [Interacting]
     Active Substance: INDOMETHACIN
     Indication: Dysmenorrhoea
     Route: 065

REACTIONS (2)
  - Hallucination, visual [Recovered/Resolved]
  - Drug interaction [Unknown]
